FAERS Safety Report 9095785 (Version 2)
Quarter: 2013Q2

REPORT INFORMATION
  Report Type: Spontaneous
  Country: IN (occurrence: None)
  Receive Date: 20130124
  Receipt Date: 20130522
  Transmission Date: 20140414
  Serious: Yes (Hospitalization)
  Sender: FDA-Public Use
  Company Number: NSR_00786_2013

PATIENT
  Age: 12 Year
  Sex: Male

DRUGS (2)
  1. LAMOTRIGINE [Suspect]
     Indication: PARTIAL SEIZURES
     Dates: start: 200909, end: 2009
  2. VALPROATE (UNKNOWN) [Concomitant]

REACTIONS (13)
  - Rash macular [None]
  - Skin hyperpigmentation [None]
  - Hyperbilirubinaemia [None]
  - Aspartate aminotransferase increased [None]
  - Alanine aminotransferase increased [None]
  - Hepatomegaly [None]
  - Cholestasis [None]
  - Blood alkaline phosphatase increased [None]
  - Blood albumin decreased [None]
  - Drug-induced liver injury [None]
  - Hepatic fibrosis [None]
  - Vanishing bile duct syndrome [None]
  - Drug hypersensitivity [None]
